FAERS Safety Report 8525655 (Version 3)
Quarter: 2014Q1

REPORT INFORMATION
  Report Type: Spontaneous
  Country: US (occurrence: US)
  Receive Date: 20120423
  Receipt Date: 20140324
  Transmission Date: 20141002
  Serious: Yes (Hospitalization)
  Sender: FDA-Public Use
  Company Number: US-GLAXOSMITHKLINE-A0862613A

PATIENT
  Sex: Male
  Weight: 90.9 kg

DRUGS (5)
  1. AVANDIA [Suspect]
     Indication: DIABETES MELLITUS
     Dosage: 4MG PER DAY
     Route: 048
     Dates: start: 20020408
  2. GLUCOTROL [Concomitant]
  3. NORVASC [Concomitant]
  4. HCTZ [Concomitant]
  5. ENALAPRIL [Concomitant]

REACTIONS (2)
  - Renal failure [Not Recovered/Not Resolved]
  - Cardiac failure congestive [Unknown]
